FAERS Safety Report 6010319-9 (Version None)
Quarter: 2008Q4

REPORT INFORMATION
  Report Type: 
  Country: None (occurrence: None)
  Receive Date: 20081218
  Receipt Date: 20080701
  Transmission Date: 20090506
  Serious: No
  Sender: FDA-Public Use
  Company Number: A0735575A

PATIENT
  Age: 54 Year
  Sex: Female

DRUGS (3)
  1. FLONASE [Suspect]
     Indication: MULTIPLE ALLERGIES
     Dosage: 2SPR PER DAY
     Route: 045
  2. FLUTICASONE PROPIONATE [Suspect]
     Dosage: 2SPR PER DAY
     Route: 045
  3. CLARITIN [Concomitant]

REACTIONS (3)
  - EPISTAXIS [None]
  - NASAL DRYNESS [None]
  - VASCULAR INJURY [None]
